FAERS Safety Report 9473077 (Version 3)
Quarter: 2013Q3

REPORT INFORMATION
  Report Type: Report from Study
  Country: US (occurrence: US)
  Receive Date: 20130823
  Receipt Date: 20130903
  Transmission Date: 20140515
  Serious: Yes (Life-Threatening, Hospitalization)
  Sender: FDA-Public Use
  Company Number: US-009507513-1308USA009771

PATIENT
  Age: 57 Year
  Sex: Male
  Weight: 81.73 kg

DRUGS (3)
  1. VORINOSTAT [Suspect]
     Indication: ACUTE MYELOID LEUKAEMIA
     Dosage: 500 MG, TID PO ON DAYS 1 - 3 (CYCLE = 28 DAYS)
     Route: 048
     Dates: start: 20130808
  2. IDARUBICIN [Suspect]
     Indication: ACUTE MYELOID LEUKAEMIA
     Dosage: 12 MG/M2 PER DAY OVER 15 MINS ON DAYS 4 - 6 (CYCLE = 28 DAYS)
     Route: 042
     Dates: start: 20130811
  3. CYTARABINE [Suspect]
     Indication: ACUTE MYELOID LEUKAEMIA
     Dosage: 1500 MG/M2/ DAY CONTINOUS IV INFUSION ON DAYS 4-7 (CYCLE = 28 DAYS)
     Route: 042
     Dates: start: 20130811

REACTIONS (5)
  - Sepsis [Recovering/Resolving]
  - Pericardial effusion [Recovering/Resolving]
  - Enterocolitis infectious [Recovering/Resolving]
  - Febrile neutropenia [Recovering/Resolving]
  - Hypocalcaemia [Recovering/Resolving]
